FAERS Safety Report 16909181 (Version 2)
Quarter: 2019Q4

REPORT INFORMATION
  Report Type: Report from Study
  Country: US (occurrence: US)
  Receive Date: 20191011
  Receipt Date: 20191114
  Transmission Date: 20200122
  Serious: Yes (Other)
  Sender: FDA-Public Use
  Company Number: US-EISAI MEDICAL RESEARCH-EC-2019-061473

PATIENT
  Sex: Female

DRUGS (3)
  1. LENVIMA [Suspect]
     Active Substance: LENVATINIB
     Route: 048
     Dates: start: 2019, end: 201910
  2. LENVIMA [Suspect]
     Active Substance: LENVATINIB
     Route: 048
     Dates: start: 201910
  3. LENVIMA [Suspect]
     Active Substance: LENVATINIB
     Indication: HEPATOCELLULAR CARCINOMA
     Route: 048
     Dates: start: 20190822, end: 201909

REACTIONS (15)
  - Decreased appetite [Not Recovered/Not Resolved]
  - Pneumonia [Recovered/Resolved]
  - Blood pressure increased [Recovering/Resolving]
  - Musculoskeletal discomfort [Recovered/Resolved]
  - Vomiting [Not Recovered/Not Resolved]
  - Cardiac failure congestive [Recovering/Resolving]
  - Fatigue [Not Recovered/Not Resolved]
  - Pyelonephritis [Recovered/Resolved]
  - Cystitis [Recovering/Resolving]
  - Affect lability [Recovered/Resolved]
  - Ammonia increased [Not Recovered/Not Resolved]
  - Nausea [Not Recovered/Not Resolved]
  - Somnolence [Not Recovered/Not Resolved]
  - Renal pain [Recovered/Resolved]
  - Platelet count decreased [Not Recovered/Not Resolved]

NARRATIVE: CASE EVENT DATE: 2019
